FAERS Safety Report 10245582 (Version 1)
Quarter: 2014Q2

REPORT INFORMATION
  Report Type: Spontaneous
  Country: US (occurrence: US)
  Receive Date: 20140619
  Receipt Date: 20140619
  Transmission Date: 20141212
  Serious: Yes (Hospitalization, Other)
  Sender: FDA-Public Use
  Company Number: US-ABBVIE-14P-163-1247240-00

PATIENT
  Age: 53 Year
  Sex: Male

DRUGS (6)
  1. DEPAKOTE [Suspect]
     Indication: PRODUCT USED FOR UNKNOWN INDICATION
  2. DIVALPROEX SODIUM [Suspect]
     Indication: PRODUCT USED FOR UNKNOWN INDICATION
     Dates: start: 201210, end: 201210
  3. LAMICTAL [Suspect]
     Indication: PARTIAL SEIZURES
     Route: 048
     Dates: start: 2010
  4. LAMOTRIGINE [Suspect]
     Indication: PARTIAL SEIZURES
     Route: 048
     Dates: start: 201210, end: 201210
  5. PROPANOLOL [Concomitant]
     Indication: PRODUCT USED FOR UNKNOWN INDICATION
  6. DICLOFENAC [Concomitant]
     Indication: PRODUCT USED FOR UNKNOWN INDICATION

REACTIONS (2)
  - Cellulitis [Recovered/Resolved]
  - Convulsion [Recovered/Resolved]
